FAERS Safety Report 7494826-8 (Version None)
Quarter: 2011Q2

REPORT INFORMATION
  Report Type: 
  Country: None (occurrence: None)
  Receive Date: 20110520
  Receipt Date: 20110318
  Transmission Date: 20111010
  Serious: Yes (Life-Threatening, Hospitalization)
  Sender: FDA-Public Use
  Company Number: B0708474A

PATIENT
  Sex: Male
  Weight: 68 kg

DRUGS (3)
  1. AMITRIPTYLINE HCL [Concomitant]
     Dosage: 75MG PER DAY
     Dates: start: 20110208
  2. ZYPREXA [Concomitant]
     Dosage: 2.5MG PER DAY
  3. LAMICTAL [Suspect]
     Dosage: 100MG PER DAY
     Dates: start: 20110301, end: 20110328

REACTIONS (7)
  - RASH [None]
  - DYSPNOEA [None]
  - STEVENS-JOHNSON SYNDROME [None]
  - SWELLING FACE [None]
  - DYSPHAGIA [None]
  - FACE OEDEMA [None]
  - PETECHIAE [None]
